FAERS Safety Report 14508900 (Version 1)
Quarter: 2018Q1

REPORT INFORMATION
  Report Type: Spontaneous
  Country: IT (occurrence: IT)
  Receive Date: 20180209
  Receipt Date: 20180209
  Transmission Date: 20180509
  Serious: Yes (Hospitalization, Other)
  Sender: FDA-Public Use
  Company Number: IT-ROCHE-2069603

PATIENT
  Age: 68 Year
  Sex: Male
  Weight: 67 kg

DRUGS (4)
  1. VENLAFAXINE [Concomitant]
     Active Substance: VENLAFAXINE HYDROCHLORIDE
     Indication: DEPRESSION
     Route: 065
  2. ENOXAPARIN [Suspect]
     Active Substance: ENOXAPARIN
     Indication: PRODUCT USED FOR UNKNOWN INDICATION
     Dosage: 6000 IU
     Route: 058
  3. ACTILYSE [Suspect]
     Active Substance: ALTEPLASE
     Indication: FIBRINOLYSIS
     Route: 065
  4. ENOXAPARIN [Suspect]
     Active Substance: ENOXAPARIN
     Dosage: 4000 IU
     Route: 058

REACTIONS (3)
  - Haemorrhagic cerebral infarction [Unknown]
  - Cerebral ischaemia [Unknown]
  - Atrial fibrillation [Unknown]
